FAERS Safety Report 23457136 (Version 1)
Quarter: 2024Q1

REPORT INFORMATION
  Report Type: Spontaneous
  Country: US (occurrence: None)
  Receive Date: 20240130
  Receipt Date: 20240130
  Transmission Date: 20240409
  Serious: Yes (Hospitalization)
  Sender: FDA-Public Use
  Company Number: None

PATIENT
  Age: 86 Year
  Sex: Male
  Weight: 102.2 kg

DRUGS (1)
  1. CISPLATIN [Suspect]
     Active Substance: CISPLATIN
     Dates: end: 20211215

REACTIONS (14)
  - Decreased appetite [None]
  - Retching [None]
  - Abdominal discomfort [None]
  - Hypertransaminasaemia [None]
  - Hepatic steatosis [None]
  - Hepatic fibrosis [None]
  - Clostridium difficile infection [None]
  - Abdominal distension [None]
  - Adult failure to thrive [None]
  - Enteritis [None]
  - Febrile neutropenia [None]
  - Hypophagia [None]
  - Catheter site abscess [None]
  - COVID-19 [None]

NARRATIVE: CASE EVENT DATE: 20211219
